FAERS Safety Report 4643869-8 (Version None)
Quarter: 2005Q2

REPORT INFORMATION
  Report Type: 
  Country: None (occurrence: None)
  Receive Date: 20050421
  Receipt Date: 20050415
  Transmission Date: 20051028
  Serious: Yes (Other)
  Sender: FDA-Public Use
  Company Number: 05-04-0650

PATIENT
  Sex: Female

DRUGS (1)
  1. TAMOXIFEN CITRATE [Suspect]
     Indication: BREAST CANCER

REACTIONS (2)
  - MENORRHAGIA [None]
  - PSYCHOTIC DISORDER [None]
